FAERS Safety Report 5691071-3 (Version None)
Quarter: 2008Q2

REPORT INFORMATION
  Report Type: 
  Country: None (occurrence: None)
  Receive Date: 20080401
  Receipt Date: 20080320
  Transmission Date: 20081010
  Serious: Yes (Other)
  Sender: FDA-Public Use
  Company Number: US-PFIZER INC-2008026250

PATIENT
  Age: 26 Year
  Sex: Male
  Weight: 97.727 kg

DRUGS (3)
  1. LYRICA [Suspect]
     Indication: NEURALGIA
  2. ALCOHOL [Interacting]
  3. IBUPROFEN [Concomitant]

REACTIONS (4)
  - ALCOHOL INTOLERANCE [None]
  - DRUG INTERACTION [None]
  - LOSS OF CONSCIOUSNESS [None]
  - VOMITING [None]
